FAERS Safety Report 22020594 (Version 1)
Quarter: 2023Q1

REPORT INFORMATION
  Report Type: Spontaneous
  Country: US (occurrence: US)
  Receive Date: 20230222
  Receipt Date: 20230222
  Transmission Date: 20230418
  Serious: Yes (Other)
  Sender: FDA-Public Use
  Company Number: US-PFIZER INC-202300076520

PATIENT
  Sex: Female

DRUGS (1)
  1. XELJANZ XR [Suspect]
     Active Substance: TOFACITINIB CITRATE
     Dosage: 11 MG, DAILY (11MG BY MOUTH EVERY DAY)
     Route: 048
     Dates: start: 202212, end: 20230130

REACTIONS (7)
  - Pneumonia [Recovering/Resolving]
  - Bronchitis [Recovering/Resolving]
  - COVID-19 [Recovering/Resolving]
  - Nasal congestion [Recovering/Resolving]
  - Pain [Not Recovered/Not Resolved]
  - Cough [Recovering/Resolving]
  - Illness [Unknown]

NARRATIVE: CASE EVENT DATE: 20230101
